FAERS Safety Report 25896291 (Version 1)
Quarter: 2025Q4

REPORT INFORMATION
  Report Type: Spontaneous
  Country: US (occurrence: US)
  Receive Date: 20251008
  Receipt Date: 20251008
  Transmission Date: 20260118
  Serious: Yes (Other)
  Sender: US WORLDMEDS
  Company Number: US-USWM-UWM202509-000152

PATIENT
  Sex: Male

DRUGS (2)
  1. EFLORNITHINE [Suspect]
     Active Substance: EFLORNITHINE
     Indication: Chemotherapy
     Dosage: TWICE A DAY (BID)
  2. ALECTINIB [Suspect]
     Active Substance: ALECTINIB
     Indication: Chemotherapy
     Dosage: TWICE A DAY (BID)

REACTIONS (5)
  - Neutropenia [Not Recovered/Not Resolved]
  - Deafness [Not Recovered/Not Resolved]
  - Insomnia [Unknown]
  - Pain [Unknown]
  - Alopecia [Recovered/Resolved]
